FAERS Safety Report 8430049-3 (Version None)
Quarter: 2012Q2

REPORT INFORMATION
  Report Type: 
  Country: None (occurrence: None)
  Receive Date: 20120612
  Receipt Date: 20120606
  Transmission Date: 20120825
  Serious: Yes (Life-Threatening)
  Sender: FDA-Public Use
  Company Number: FR-ROCHE-1061588

PATIENT
  Sex: Female
  Weight: 63 kg

DRUGS (3)
  1. ASPIRIN [Suspect]
     Indication: CARDIAC FAILURE
  2. HERCEPTIN [Suspect]
     Indication: BREAST CANCER
     Dates: end: 20120208
  3. HERCEPTIN [Suspect]
     Dates: start: 20120406

REACTIONS (2)
  - CARDIAC FAILURE [None]
  - SUBDURAL HAEMATOMA [None]
